FAERS Safety Report 4966159-2 (Version None)
Quarter: 2006Q2

REPORT INFORMATION
  Report Type: 
  Country: None (occurrence: None)
  Receive Date: 20060407
  Receipt Date: 20060126
  Transmission Date: 20061013
  Serious: Yes (Death)
  Sender: FDA-Public Use
  Company Number: US-ROCHE-433995

PATIENT
  Age: 22 Year
  Sex: Female

DRUGS (1)
  1. CELLCEPT [Suspect]
     Route: 065

REACTIONS (4)
  - CARDIAC ARREST [None]
  - CYTOMEGALOVIRUS INFECTION [None]
  - LUNG INFILTRATION [None]
  - PNEUMONIA CYTOMEGALOVIRAL [None]
